FAERS Safety Report 4710809-2 (Version None)
Quarter: 2005Q3

REPORT INFORMATION
  Report Type: 
  Country: None (occurrence: None)
  Receive Date: 20050711
  Receipt Date: 20050629
  Transmission Date: 20060218
  Serious: Yes (Hospitalization)
  Sender: FDA-Public Use
  Company Number: CZ-BRISTOL-MYERS SQUIBB COMPANY-13022850

PATIENT
  Age: 3 Year
  Sex: Female

DRUGS (4)
  1. CEFZIL [Suspect]
     Indication: PHARYNGITIS
     Route: 048
     Dates: start: 20050620, end: 20050621
  2. CEFZIL [Suspect]
     Indication: LARYNGOTRACHEITIS
     Route: 048
     Dates: start: 20050620, end: 20050621
  3. PROTHAZINE [Concomitant]
  4. BRUFEN [Concomitant]
     Dosage: SYRUP
     Route: 048

REACTIONS (4)
  - AGITATION [None]
  - CONFUSIONAL STATE [None]
  - HALLUCINATION [None]
  - PSYCHOMOTOR HYPERACTIVITY [None]
